APPROVED DRUG PRODUCT: HEPARIN SODIUM 25,000 UNITS IN SODIUM CHLORIDE 0.9% IN PLASTIC CONTAINER
Active Ingredient: HEPARIN SODIUM
Strength: 5,000 UNITS/100ML **Federal Register determination that product was not discontinued or withdrawn for safety or effectiveness reasons**
Dosage Form/Route: INJECTABLE;INJECTION
Application: N019802 | Product #003
Applicant: B BRAUN MEDICAL INC
Approved: Jul 20, 1992 | RLD: No | RS: No | Type: DISCN